FAERS Safety Report 7326180-6 (Version None)
Quarter: 2011Q1

REPORT INFORMATION
  Report Type: 
  Country: None (occurrence: None)
  Receive Date: 20110302
  Receipt Date: 20110223
  Transmission Date: 20110831
  Serious: Yes (Hospitalization)
  Sender: FDA-Public Use
  Company Number: NO-ASTRAZENECA-2011SE10326

PATIENT
  Age: 51 Year
  Sex: Male

DRUGS (8)
  1. METFORMIN [Concomitant]
     Indication: TYPE 2 DIABETES MELLITUS
     Dosage: 500 + 1000 MG
  2. TOLVON [Concomitant]
     Route: 048
  3. ALBYL-E [Concomitant]
     Route: 048
  4. ENTOCORT EC [Suspect]
     Indication: INFLAMMATORY BOWEL DISEASE
     Route: 048
     Dates: start: 20100824, end: 20101123
  5. EZETROL [Concomitant]
     Route: 048
  6. PENTASA [Concomitant]
  7. LANSOPRAZOLE [Concomitant]
     Route: 048
  8. DILTIAZEM [Concomitant]
     Route: 048

REACTIONS (1)
  - HYPERGLYCAEMIA [None]
